FAERS Safety Report 20156211 (Version 2)
Quarter: 2022Q1

REPORT INFORMATION
  Report Type: Spontaneous
  Country: IN (occurrence: IN)
  Receive Date: 20211207
  Receipt Date: 20220322
  Transmission Date: 20220423
  Serious: Yes (Death, Hospitalization, Other)
  Sender: FDA-Public Use
  Company Number: IN-PFIZER INC-2020408908

PATIENT
  Age: 71 Year
  Sex: Male

DRUGS (1)
  1. CRIZOTINIB [Suspect]
     Active Substance: CRIZOTINIB
     Indication: Lung neoplasm malignant
     Dosage: 250 MG, 2X/DAY
     Route: 048
     Dates: start: 20191125, end: 202112

REACTIONS (5)
  - Neoplasm progression [Fatal]
  - Deep vein thrombosis [Unknown]
  - Oxygen saturation decreased [Unknown]
  - COVID-19 [Unknown]
  - Malaise [Unknown]

NARRATIVE: CASE EVENT DATE: 20200828
